FAERS Safety Report 21375868 (Version 1)
Quarter: 2022Q3

REPORT INFORMATION
  Report Type: Spontaneous
  Country: DE (occurrence: DE)
  Receive Date: 20220926
  Receipt Date: 20220926
  Transmission Date: 20221026
  Serious: Yes (Other)
  Sender: FDA-Public Use
  Company Number: DE-SA-SAC20220812000994

PATIENT
  Age: 63 Year
  Sex: Female

DRUGS (6)
  1. IBUPROFEN [Suspect]
     Active Substance: IBUPROFEN
     Indication: Product used for unknown indication
     Dosage: UNK
     Route: 065
  2. BENZOCAINE\ETHACRIDINE LACTATE [Suspect]
     Active Substance: BENZOCAINE\ETHACRIDINE LACTATE
     Indication: Influenza
     Dosage: UNK
     Route: 048
  3. BENZOCAINE\ETHACRIDINE LACTATE [Suspect]
     Active Substance: BENZOCAINE\ETHACRIDINE LACTATE
     Indication: Nasopharyngitis
  4. HERBALS [Suspect]
     Active Substance: HERBALS
     Indication: Product used for unknown indication
     Dosage: UNK
     Route: 065
  5. PROPOLIS WAX [Suspect]
     Active Substance: PROPOLIS WAX
     Indication: Product used for unknown indication
     Dosage: UNK
     Route: 065
  6. AMBROXOL HYDROCHLORIDE [Suspect]
     Active Substance: AMBROXOL HYDROCHLORIDE
     Indication: Product used for unknown indication
     Dosage: UNK
     Route: 048

REACTIONS (2)
  - Choking [Recovered/Resolved]
  - Panic attack [Recovered/Resolved]

NARRATIVE: CASE EVENT DATE: 20180210
